FAERS Safety Report 7077741-3 (Version None)
Quarter: 2010Q4

REPORT INFORMATION
  Report Type: 
  Country: None (occurrence: None)
  Receive Date: 20101101
  Receipt Date: 20101028
  Transmission Date: 20110411
  Serious: Yes (Hospitalization, Disabling, Other)
  Sender: FDA-Public Use
  Company Number: US-WYE-H18436310

PATIENT
  Sex: Male
  Weight: 76.27 kg

DRUGS (5)
  1. RAPAMUNE [Suspect]
     Indication: PROPHYLAXIS AGAINST TRANSPLANT REJECTION
     Route: 048
     Dates: start: 20050101
  2. ACETYLSALICYLIC ACID [Concomitant]
     Dosage: DOSE UNKNOWN
     Route: 065
  3. SIMVASTATIN [Concomitant]
     Dosage: DOSE UNKNOWN
     Route: 065
  4. DIOVAN [Concomitant]
     Dosage: DOSE UNKNOWN
     Route: 065
  5. AMLODIPINE [Concomitant]
     Dosage: DOSE UNKNOWN
     Route: 065

REACTIONS (2)
  - HERNIA [None]
  - PROSTATE CANCER [None]
